FAERS Safety Report 6492656-7 (Version None)
Quarter: 2009Q4

REPORT INFORMATION
  Report Type: 
  Country: None (occurrence: None)
  Receive Date: 20091209
  Receipt Date: 20091201
  Transmission Date: 20100525
  Serious: No
  Sender: FDA-Public Use
  Company Number: 002580

PATIENT
  Sex: Female

DRUGS (1)
  1. ROTIGOTINE [Suspect]
     Dosage: (6 MG QD TRANSDERMAL)
     Route: 062
     Dates: start: 20090306, end: 20091128

REACTIONS (1)
  - CEREBROVASCULAR ACCIDENT [None]
